FAERS Safety Report 23150795 (Version 4)
Quarter: 2023Q4

REPORT INFORMATION
  Report Type: Report from Study
  Country: FR (occurrence: FR)
  Receive Date: 20231106
  Receipt Date: 20231229
  Transmission Date: 20240109
  Serious: Yes (Death, Hospitalization)
  Sender: FDA-Public Use
  Company Number: FR-SA-SAC20231031001275

PATIENT
  Age: 82 Year
  Sex: Female
  Weight: 48 kg

DRUGS (6)
  1. ISATUXIMAB [Suspect]
     Active Substance: ISATUXIMAB
     Indication: Primary amyloidosis
     Dosage: 490 MG, QOW
     Route: 042
     Dates: start: 20230426, end: 20230426
  2. ISATUXIMAB [Suspect]
     Active Substance: ISATUXIMAB
     Dosage: 490 MG, QOW
     Route: 042
     Dates: start: 20230718, end: 20230718
  3. POMALIDOMIDE [Suspect]
     Active Substance: POMALIDOMIDE
     Indication: Primary amyloidosis
     Dosage: 4 MG, QD
     Route: 048
     Dates: start: 20230426, end: 20230426
  4. POMALIDOMIDE [Suspect]
     Active Substance: POMALIDOMIDE
     Dosage: 4 MG, QD
     Route: 048
     Dates: start: 20230801, end: 20230801
  5. DEXAMETHASONE [Suspect]
     Active Substance: DEXAMETHASONE
     Indication: Primary amyloidosis
     Dosage: 10 MG, QW
     Route: 048
     Dates: start: 20230426, end: 20230426
  6. DEXAMETHASONE [Suspect]
     Active Substance: DEXAMETHASONE
     Dosage: 10 MG, QW
     Route: 048
     Dates: start: 20230725, end: 20230725

REACTIONS (2)
  - COVID-19 [Fatal]
  - Transient ischaemic attack [Recovered/Resolved]

NARRATIVE: CASE EVENT DATE: 20231025
